FAERS Safety Report 14569922 (Version 3)
Quarter: 2018Q2

REPORT INFORMATION
  Report Type: Spontaneous
  Country: US (occurrence: US)
  Receive Date: 20180225
  Receipt Date: 20180601
  Transmission Date: 20180711
  Serious: No
  Sender: FDA-Public Use
  Company Number: US-JNJFOC-20180211267

PATIENT
  Age: 47 Year
  Sex: Female

DRUGS (5)
  1. SERTRALINE [Concomitant]
     Active Substance: SERTRALINE HYDROCHLORIDE
     Indication: DEPRESSION
     Route: 065
  2. WOMENS ROGAINE UNSCENTED [Suspect]
     Active Substance: MINOXIDIL
     Route: 061
  3. WOMENS ROGAINE UNSCENTED [Suspect]
     Active Substance: MINOXIDIL
     Indication: PRODUCT USED FOR UNKNOWN INDICATION
     Dosage: MORE THAN HALF CAPFUL
     Route: 061
     Dates: start: 20180105
  4. VAGIFEM [Concomitant]
     Active Substance: ESTRADIOL
     Indication: OESTROGEN THERAPY
     Route: 065
  5. MELOXICAM. [Concomitant]
     Active Substance: MELOXICAM
     Indication: OSTEOARTHRITIS
     Route: 065

REACTIONS (3)
  - Trichorrhexis [Unknown]
  - Hair texture abnormal [Unknown]
  - Overdose [Unknown]

NARRATIVE: CASE EVENT DATE: 20180105
